FAERS Safety Report 4351058-X (Version None)
Quarter: 2004Q2

REPORT INFORMATION
  Report Type: 
  Country: None (occurrence: None)
  Receive Date: 20040427
  Receipt Date: 20040413
  Transmission Date: 20050107
  Serious: Yes (Disabling)
  Sender: FDA-Public Use
  Company Number: 2004CG00697

PATIENT
  Age: 76 Year
  Sex: Female

DRUGS (4)
  1. XYLOCAINE [Suspect]
     Indication: LOCAL ANAESTHESIA
     Dates: start: 20031128, end: 20031128
  2. NO MATCH [Suspect]
     Dates: start: 20031128, end: 20031128
  3. BSS [Suspect]
     Dates: start: 20031128, end: 20031128
  4. BETADINE [Suspect]
     Dates: start: 20031128, end: 20031128

REACTIONS (5)
  - ANAESTHETIC COMPLICATION [None]
  - CATARACT OPERATION COMPLICATION [None]
  - ENDOPHTHALMITIS [None]
  - OFF LABEL USE [None]
  - OPHTHALMOLOGICAL EXAMINATION ABNORMAL [None]
